FAERS Safety Report 11405337 (Version 1)
Quarter: 2015Q3

REPORT INFORMATION
  Report Type: Spontaneous
  Country: US (occurrence: US)
  Receive Date: 20150821
  Receipt Date: 20150821
  Transmission Date: 20151125
  Serious: Yes (Hospitalization)
  Sender: FDA-Public Use
  Company Number: US-FRESENIUS KABI-FK201503900

PATIENT
  Age: 5 Month
  Sex: Female

DRUGS (2)
  1. MELPHALAN [Suspect]
     Active Substance: MELPHALAN
     Indication: RETINOBLASTOMA
  2. TOPOTECAN [Suspect]
     Active Substance: TOPOTECAN\TOPOTECAN HYDROCHLORIDE
     Indication: RETINOBLASTOMA
     Route: 047

REACTIONS (4)
  - Enophthalmos [Unknown]
  - Choroidal dystrophy [Unknown]
  - Scleritis [Unknown]
  - Iris atrophy [Unknown]
